FAERS Safety Report 11915523 (Version 1)
Quarter: 2016Q1

REPORT INFORMATION
  Report Type: Spontaneous
  Country: None (occurrence: None)
  Receive Date: 20160113
  Receipt Date: 20160113
  Transmission Date: 20160526
  Serious: No
  Sender: FDA-Public Use
  Company Number: None

PATIENT
  Age: 7 Year
  Sex: Female

DRUGS (1)
  1. AMOXICILLIN SUSPENSION 400 MG/5 ML SANDOZ [Suspect]
     Active Substance: AMOXICILLIN
     Route: 048

REACTIONS (2)
  - Psychomotor hyperactivity [None]
  - Abnormal behaviour [None]

NARRATIVE: CASE EVENT DATE: 20160112
